FAERS Safety Report 20375836 (Version 10)
Quarter: 2024Q4

REPORT INFORMATION
  Report Type: Spontaneous
  Country: PR (occurrence: PR)
  Receive Date: 20220125
  Receipt Date: 20241004
  Transmission Date: 20250115
  Serious: Yes (Hospitalization, Other)
  Sender: PFIZER
  Company Number: PR-PFIZER INC-202200113972

PATIENT
  Age: 65 Year
  Sex: Female

DRUGS (1)
  1. XELJANZ [Suspect]
     Active Substance: TOFACITINIB CITRATE
     Dosage: 5 MG
     Route: 048

REACTIONS (22)
  - Paralysis [Unknown]
  - Hand deformity [Unknown]
  - Product dose omission issue [Unknown]
  - Loss of personal independence in daily activities [Unknown]
  - General physical health deterioration [Unknown]
  - Transfusion [Unknown]
  - Spinal operation [Unknown]
  - Pain [Not Recovered/Not Resolved]
  - Pain in extremity [Unknown]
  - Fatigue [Unknown]
  - Throat irritation [Unknown]
  - Body temperature fluctuation [Unknown]
  - Respiratory tract infection [Unknown]
  - Bronchitis [Unknown]
  - Hypertension [Unknown]
  - Gait disturbance [Unknown]
  - Illness [Unknown]
  - Respiratory disorder [Unknown]
  - Dysphonia [Unknown]
  - Feeling of despair [Unknown]
  - Inflammation [Unknown]
  - Finger deformity [Unknown]

NARRATIVE: CASE EVENT DATE: 20230101
